FAERS Safety Report 9678454 (Version 4)
Quarter: 2013Q4

REPORT INFORMATION
  Report Type: Spontaneous
  Country: JP (occurrence: JP)
  Receive Date: 20131108
  Receipt Date: 20131220
  Transmission Date: 20140711
  Serious: Yes (Life-Threatening)
  Sender: FDA-Public Use
  Company Number: JP-BRISTOL-MYERS SQUIBB COMPANY-19579341

PATIENT
  Age: 87 Year
  Sex: Male
  Weight: 55 kg

DRUGS (6)
  1. ELIQUIS [Suspect]
     Indication: EMBOLIC STROKE
     Dosage: STOP DATE:01OCT13?TAB
     Route: 048
     Dates: start: 20130918, end: 20130922
  2. LASIX [Concomitant]
     Route: 048
     Dates: start: 20130206
  3. ARTIST [Concomitant]
     Dosage: TABS
     Route: 048
     Dates: start: 20130206
  4. RENIVACE [Concomitant]
     Dosage: TABS
     Route: 048
     Dates: start: 20130206
  5. FEBUXOSTAT [Concomitant]
     Dosage: TABS
     Route: 048
     Dates: start: 20130827
  6. FERO-GRADUMET [Concomitant]
     Route: 048
     Dates: start: 20110805

REACTIONS (3)
  - Anuria [Recovered/Resolved]
  - Muscular weakness [Recovered/Resolved]
  - Dysstasia [Recovered/Resolved]
